FAERS Safety Report 23585701 (Version 1)
Quarter: 2024Q1

REPORT INFORMATION
  Report Type: Spontaneous
  Country: US (occurrence: None)
  Receive Date: 20240229
  Receipt Date: 20240229
  Transmission Date: 20240409
  Serious: Yes (unspecified)
  Sender: FDA-Public Use
  Company Number: None

PATIENT
  Age: 60 Year
  Sex: Female
  Weight: 50.85 kg

DRUGS (1)
  1. TECLISTAMAB [Suspect]
     Active Substance: TECLISTAMAB
     Indication: Plasma cell myeloma
     Dosage: FREQUENCY : ONCE;?
     Route: 058
     Dates: start: 20240129, end: 20240129

REACTIONS (7)
  - Dyspnoea [None]
  - Chest discomfort [None]
  - Blood pressure decreased [None]
  - Body temperature increased [None]
  - Blood culture positive [None]
  - Alpha haemolytic streptococcal infection [None]
  - Pain [None]

NARRATIVE: CASE EVENT DATE: 20240130
